FAERS Safety Report 12505021 (Version 2)
Quarter: 2016Q3

REPORT INFORMATION
  Report Type: Spontaneous
  Country: JP (occurrence: JP)
  Receive Date: 20160628
  Receipt Date: 20160726
  Transmission Date: 20161109
  Serious: Yes (Other)
  Sender: FDA-Public Use
  Company Number: JP-BAYER-2016-120144

PATIENT
  Age: 61 Year
  Sex: Female

DRUGS (2)
  1. BAYASPIRIN [Suspect]
     Active Substance: ASPIRIN
     Indication: TAKAYASU^S ARTERITIS
     Dosage: 100 MG, QD
     Route: 048
  2. PREDNISOLONE. [Suspect]
     Active Substance: PREDNISOLONE
     Indication: TAKAYASU^S ARTERITIS
     Dosage: }10 MG
     Route: 048

REACTIONS (6)
  - Pyrexia [None]
  - Perforation [None]
  - Infusion site extravasation [None]
  - Abdominal pain [None]
  - Haematochezia [None]
  - Diverticulum intestinal haemorrhagic [None]
